FAERS Safety Report 18191970 (Version 2)
Quarter: 2020Q3

REPORT INFORMATION
  Report Type: Spontaneous
  Country: US (occurrence: US)
  Receive Date: 20200825
  Receipt Date: 20200902
  Transmission Date: 20201103
  Serious: No
  Sender: FDA-Public Use
  Company Number: US-ELI_LILLY_AND_COMPANY-US202008008874

PATIENT
  Sex: Male

DRUGS (2)
  1. TALTZ [Suspect]
     Active Substance: IXEKIZUMAB
     Indication: PSORIASIS
     Dosage: 80 MG, UNKNOWN
     Route: 058
     Dates: end: 20200705
  2. TALTZ [Suspect]
     Active Substance: IXEKIZUMAB
     Dosage: UNK
     Route: 065
     Dates: start: 20200820

REACTIONS (3)
  - Arthralgia [Unknown]
  - Psoriasis [Unknown]
  - Gait disturbance [Not Recovered/Not Resolved]
